FAERS Safety Report 15429290 (Version 1)
Quarter: 2018Q3

REPORT INFORMATION
  Report Type: Spontaneous
  Country: US (occurrence: US)
  Receive Date: 20180926
  Receipt Date: 20180926
  Transmission Date: 20181010
  Serious: No
  Sender: FDA-Public Use
  Company Number: US-MYLANLABS-2018M1068404

PATIENT
  Age: 73 Year
  Sex: Male

DRUGS (3)
  1. LIOTHYRONINE SODIUM TABLETS, USP [Suspect]
     Active Substance: LIOTHYRONINE SODIUM
     Dosage: 0.5 DF, QD (25 MCG IN HALF DAILY)
     Route: 048
     Dates: start: 2018
  2. LIOTHYRONINE SODIUM TABLETS, USP [Suspect]
     Active Substance: LIOTHYRONINE SODIUM
     Indication: HYPOTHYROIDISM
     Dosage: 5 ?G, QD
     Route: 048
     Dates: start: 201806
  3. LIOTHYRONINE SODIUM TABLETS, USP [Suspect]
     Active Substance: LIOTHYRONINE SODIUM
     Indication: HYPOTHYROIDISM
     Dosage: 25 ?G, QD
     Route: 048
     Dates: start: 201807

REACTIONS (5)
  - Wrong technique in product usage process [Not Recovered/Not Resolved]
  - Neutrophil count increased [Unknown]
  - Glomerular filtration rate abnormal [Unknown]
  - Product substitution issue [Unknown]
  - Blood thyroid stimulating hormone abnormal [Unknown]

NARRATIVE: CASE EVENT DATE: 2018
